FAERS Safety Report 6616968-9 (Version None)
Quarter: 2010Q1

REPORT INFORMATION
  Report Type: 
  Country: None (occurrence: None)
  Receive Date: 20100302
  Receipt Date: 20100215
  Transmission Date: 20100710
  Serious: Yes (Hospitalization)
  Sender: FDA-Public Use
  Company Number: 2010-0528

PATIENT
  Age: 45 Year
  Sex: Male

DRUGS (1)
  1. SOMATULINE DEPOT [Suspect]
     Indication: BRAIN NEOPLASM
     Dosage: 120 MG (120 MG)

REACTIONS (1)
  - PSYCHOTIC DISORDER [None]
